FAERS Safety Report 16215305 (Version 1)
Quarter: 2019Q2

REPORT INFORMATION
  Report Type: Spontaneous
  Country: US (occurrence: US)
  Receive Date: 20190419
  Receipt Date: 20190419
  Transmission Date: 20190711
  Serious: No
  Sender: FDA-Public Use
  Company Number: US-ACCORD-072730

PATIENT
  Age: 70 Year
  Sex: Male
  Weight: 108.86 kg

DRUGS (4)
  1. SERENOA REPENS [Concomitant]
     Active Substance: SERENOA REPENS WHOLE
  2. ACETYLSALICYLIC ACID [Concomitant]
     Active Substance: ASPIRIN
  3. GLUCOSAMINE [Concomitant]
     Active Substance: GLUCOSAMINE
  4. FINASTERIDE. [Suspect]
     Active Substance: FINASTERIDE
     Indication: PROSTATOMEGALY
     Route: 048
     Dates: start: 2014, end: 2018

REACTIONS (2)
  - Penile size reduced [Not Recovered/Not Resolved]
  - Depression [Unknown]
